FAERS Safety Report 12203278 (Version 3)
Quarter: 2016Q2

REPORT INFORMATION
  Report Type: Spontaneous
  Country: IT (occurrence: IT)
  Receive Date: 20160323
  Receipt Date: 20160429
  Transmission Date: 20160815
  Serious: Yes (Death, Other)
  Sender: FDA-Public Use
  Company Number: IT-BRISTOL-MYERS SQUIBB COMPANY-BMS-2016-018461

PATIENT
  Age: 77 Year
  Sex: Female
  Weight: 70 kg

DRUGS (3)
  1. YERVOY [Suspect]
     Active Substance: IPILIMUMAB
     Indication: METASTATIC MALIGNANT MELANOMA
     Dosage: 210 MG, QCYCLE
     Route: 042
     Dates: start: 20151230, end: 20151230
  2. YERVOY [Suspect]
     Active Substance: IPILIMUMAB
     Dosage: 210 MG, QCYCLE
     Route: 042
     Dates: start: 20160120, end: 20160120
  3. YERVOY [Suspect]
     Active Substance: IPILIMUMAB
     Dosage: 210 MG, QCYCLE
     Route: 042
     Dates: start: 20160210, end: 20160210

REACTIONS (3)
  - Diarrhoea [Recovered/Resolved]
  - Thrombocytopenia [Fatal]
  - Transfusion [Unknown]

NARRATIVE: CASE EVENT DATE: 20160212
